FAERS Safety Report 11702530 (Version 1)
Quarter: 2015Q4

REPORT INFORMATION
  Report Type: Spontaneous
  Country: FR (occurrence: FR)
  Receive Date: 20151105
  Receipt Date: 20151105
  Transmission Date: 20160304
  Serious: Yes (Congenital Anomaly, Other)
  Sender: FDA-Public Use
  Company Number: FR-ABBVIE-15P-056-1494959-00

PATIENT
  Age: 1 Day
  Sex: Female

DRUGS (3)
  1. RISPERDAL [Suspect]
     Active Substance: RISPERIDONE
     Indication: MATERNAL EXPOSURE TIMING UNSPECIFIED
     Route: 064
  2. XANAX [Suspect]
     Active Substance: ALPRAZOLAM
     Indication: MATERNAL EXPOSURE TIMING UNSPECIFIED
     Route: 064
  3. DEPAKOTE [Suspect]
     Active Substance: DIVALPROEX SODIUM
     Indication: MATERNAL EXPOSURE TIMING UNSPECIFIED
     Route: 064

REACTIONS (3)
  - Foetal exposure during pregnancy [Unknown]
  - Congenital anomaly [Not Recovered/Not Resolved]
  - Oligohydramnios [Not Recovered/Not Resolved]

NARRATIVE: CASE EVENT DATE: 20121124
